FAERS Safety Report 9651977 (Version 1)
Quarter: 2013Q4

REPORT INFORMATION
  Report Type: Spontaneous
  Country: GB (occurrence: GB)
  Receive Date: 20131029
  Receipt Date: 20131029
  Transmission Date: 20140711
  Serious: Yes (Hospitalization, Other)
  Sender: FDA-Public Use
  Company Number: GB-ASTRAZENECA-2013SE77357

PATIENT
  Age: 29061 Day
  Sex: Male

DRUGS (1)
  1. SYMICORT [Suspect]
     Indication: CHRONIC OBSTRUCTIVE PULMONARY DISEASE
     Dosage: 400/12 MCG ONE PUFF TWICE A DAY
     Route: 055
     Dates: start: 201102

REACTIONS (2)
  - Cardiac failure [Unknown]
  - Circumstance or information capable of leading to medication error [Unknown]
